FAERS Safety Report 10019333 (Version 1)
Quarter: 2014Q1

REPORT INFORMATION
  Report Type: Spontaneous
  Country: GB (occurrence: GB)
  Receive Date: 20140318
  Receipt Date: 20140318
  Transmission Date: 20141002
  Serious: Yes (Other)
  Sender: FDA-Public Use
  Company Number: GB-B.I. PHARMACEUTICALS,INC./RIDGEFIELD-2014-BI-10754UK

PATIENT
  Age: 41 Year
  Sex: Female
  Weight: 103 kg

DRUGS (3)
  1. LINAGLIPTIN [Suspect]
     Indication: PRODUCT USED FOR UNKNOWN INDICATION
     Route: 065
     Dates: start: 20140107
  2. GLICLAZIDE [Concomitant]
     Route: 065
     Dates: start: 20131120
  3. METFORMIN [Concomitant]
     Route: 065
     Dates: start: 20140107

REACTIONS (1)
  - Breast pain [Recovered/Resolved]
